FAERS Safety Report 5765349-9 (Version None)
Quarter: 2008Q2

REPORT INFORMATION
  Report Type: 
  Country: None (occurrence: None)
  Receive Date: 20080611
  Receipt Date: 20080529
  Transmission Date: 20081010
  Serious: Yes (Hospitalization)
  Sender: FDA-Public Use
  Company Number: DE-ELI_LILLY_AND_COMPANY-DE200803006621

PATIENT
  Age: 14 Year
  Sex: Male

DRUGS (5)
  1. STRATTERA [Suspect]
     Indication: ATTENTION DEFICIT/HYPERACTIVITY DISORDER
     Dosage: 10 MG, UNKNOWN
     Route: 048
     Dates: start: 20051201
  2. STRATTERA [Suspect]
     Dosage: 18 MG, UNKNOWN
     Route: 048
  3. STRATTERA [Suspect]
     Dosage: 25 MG, UNKNOWN
     Route: 048
  4. STRATTERA [Suspect]
     Dosage: 40 MG, UNKNOWN
     Route: 048
  5. STRATTERA [Suspect]
     Dosage: 60 MG, DAILY (1/D)
     Route: 048

REACTIONS (1)
  - TIC [None]
